FAERS Safety Report 9950977 (Version 2)
Quarter: 2014Q1

REPORT INFORMATION
  Report Type: Spontaneous
  Country: PR (occurrence: PR)
  Receive Date: 20140304
  Receipt Date: 20140304
  Transmission Date: 20141002
  Serious: No
  Sender: FDA-Public Use
  Company Number: PR-ABBVIE-12P-131-0983535-00

PATIENT
  Sex: Female
  Weight: 63.56 kg

DRUGS (5)
  1. HUMIRA [Suspect]
     Indication: COLITIS ULCERATIVE
     Route: 058
     Dates: start: 201209, end: 201212
  2. ASACOL [Concomitant]
     Indication: COLITIS ULCERATIVE
     Dosage: 2 TABS
     Route: 048
     Dates: start: 2006
  3. PROTONIL [Concomitant]
     Indication: GASTRIC DISORDER
     Dosage: 40 MG DAILY
     Route: 048
  4. ZANTAC [Concomitant]
     Indication: GASTRIC DISORDER
     Dosage: DAILY
     Route: 048
  5. SIDEROL SUPPLEMENT [Concomitant]
     Indication: COLITIS ULCERATIVE
     Dosage: DAILY
     Route: 048
     Dates: start: 2006

REACTIONS (1)
  - Off label use [Unknown]
